FAERS Safety Report 9441899 (Version 1)
Quarter: 2013Q3

REPORT INFORMATION
  Report Type: Spontaneous
  Country: US (occurrence: US)
  Receive Date: 20130806
  Receipt Date: 20130806
  Transmission Date: 20140515
  Serious: No
  Sender: FDA-Public Use
  Company Number: US-PFIZER INC-2013225028

PATIENT
  Age: 49 Year
  Sex: Female

DRUGS (3)
  1. VERAPAMIL HCL [Suspect]
     Indication: HYPERTENSION
     Dosage: UNK
  2. LISINOPRIL [Suspect]
     Indication: HYPERTENSION
     Dosage: UNK
  3. HYDROCHLOROTHIAZIDE [Suspect]
     Indication: HYPERTENSION
     Dosage: UNK

REACTIONS (1)
  - Blood pressure inadequately controlled [Unknown]
